FAERS Safety Report 24546870 (Version 2)
Quarter: 2024Q4

REPORT INFORMATION
  Report Type: Report from Study
  Country: DK (occurrence: DK)
  Receive Date: 20241024
  Receipt Date: 20241028
  Transmission Date: 20250115
  Serious: Yes (Hospitalization)
  Sender: ABBVIE
  Company Number: DK-ABBVIE-5974693

PATIENT
  Sex: Male

DRUGS (2)
  1. CARBIDOPA\LEVODOPA [Suspect]
     Active Substance: CARBIDOPA\LEVODOPA
     Indication: Parkinson^s disease
     Dosage: CURRENT INFUSION RATES (ML/H): LOW: 0.75, BASE 0.80, HIGH 0.85
     Route: 058
     Dates: start: 20241020
  2. CARBIDOPA\LEVODOPA [Suspect]
     Active Substance: CARBIDOPA\LEVODOPA
     Dosage: CURRENT INFUSION RATES (ML/H): LOW: 0.75, BASE 0.80, HIGH 0.85/DOSSE REDUCED
     Route: 058
     Dates: start: 2024

REACTIONS (2)
  - Urinary tract infection [Unknown]
  - Confusional state [Unknown]

NARRATIVE: CASE EVENT DATE: 20241001
